FAERS Safety Report 7357463-1 (Version None)
Quarter: 2011Q1

REPORT INFORMATION
  Report Type: 
  Country: None (occurrence: None)
  Receive Date: 20110317
  Receipt Date: 20100921
  Transmission Date: 20110831
  Serious: Yes (Hospitalization, Other)
  Sender: FDA-Public Use
  Company Number: US-BAYER-201020597NA

PATIENT
  Sex: Female
  Weight: 139.23 kg

DRUGS (8)
  1. ALBUTEROL [Concomitant]
     Indication: ASTHMA
     Dosage: UNK
  2. ADVIL LIQUI-GELS [Concomitant]
     Indication: PAIN
     Dosage: UNK UNK, PRN
  3. ALBUTEROL [Concomitant]
     Indication: MULTIPLE ALLERGIES
  4. YASMIN [Suspect]
     Indication: MENSTRUAL CYCLE MANAGEMENT
  5. CORTISOL [Concomitant]
  6. YASMIN [Suspect]
     Indication: ORAL CONTRACEPTION
     Dosage: 1 DF, QD
     Route: 048
     Dates: start: 20030601, end: 20070828
  7. LORATADINE [Concomitant]
     Dosage: 10 MG, UNK
  8. KEFLEX [Concomitant]
     Dosage: 500 MG, QD

REACTIONS (11)
  - DEEP VEIN THROMBOSIS [None]
  - GAIT DISTURBANCE [None]
  - MUSCULOSKELETAL STIFFNESS [None]
  - SPIDER VEIN [None]
  - PAIN IN EXTREMITY [None]
  - OEDEMA PERIPHERAL [None]
  - DYSPNOEA [None]
  - CONTUSION [None]
  - C-REACTIVE PROTEIN INCREASED [None]
  - PULMONARY EMBOLISM [None]
  - TACHYCARDIA [None]
